FAERS Safety Report 19057372 (Version 1)
Quarter: 2021Q1

REPORT INFORMATION
  Report Type: Spontaneous
  Country: GB (occurrence: GB)
  Receive Date: 20210325
  Receipt Date: 20210325
  Transmission Date: 20210420
  Serious: Yes (Death, Other)
  Sender: FDA-Public Use
  Company Number: GB-PFIZER INC-2021295065

PATIENT
  Age: 53 Year
  Sex: Female
  Weight: 63.2 kg

DRUGS (14)
  1. REMIFENTANIL [Suspect]
     Active Substance: REMIFENTANIL
     Indication: SEDATION
     Dosage: 0.27 MCG/KG/MIN
     Route: 065
     Dates: start: 20210224, end: 20210228
  2. LINEZOLID. [Suspect]
     Active Substance: LINEZOLID
     Indication: EVIDENCE BASED TREATMENT
  3. PROPOFOL. [Suspect]
     Active Substance: PROPOFOL
     Indication: SEDATIVE THERAPY
     Dosage: 30MG IV FOLLOWED BY 20?30MG IV
     Route: 042
     Dates: start: 20210228, end: 20210228
  4. METOCLOPRAMIDE. [Suspect]
     Active Substance: METOCLOPRAMIDE
     Indication: DRUG THERAPY
     Route: 042
     Dates: start: 20210225, end: 20210228
  5. NORADRENALINE (NORPINEPHRINE) [Suspect]
     Active Substance: NOREPINEPHRINE
     Indication: BLOOD PRESSURE MEASUREMENT
     Dosage: VARIABLE CONTINUOUS IV
     Route: 042
     Dates: start: 20210218, end: 20210228
  6. MEROPENEM. [Suspect]
     Active Substance: MEROPENEM
     Indication: FLUID REPLACEMENT
     Dosage: 1G BD IV
     Route: 042
     Dates: start: 20210219, end: 20210228
  7. MAGNESIUM SULFATE. [Suspect]
     Active Substance: MAGNESIUM SULFATE
     Indication: ELECTROLYTE SUBSTITUTION THERAPY
     Dosage: 5G IV PRN
     Route: 042
     Dates: start: 20210215, end: 20210228
  8. TINZAPARIN [Suspect]
     Active Substance: TINZAPARIN
     Indication: THROMBOSIS PROPHYLAXIS
     Dosage: 6000 UNITS BD SUBCUT
     Route: 058
     Dates: start: 20210215, end: 20210228
  9. HEPARIN [Suspect]
     Active Substance: HEPARIN SODIUM
     Indication: HAEMOFILTRATION
     Dosage: 625 UNITS/HR VIA HAEMOFILTER
     Route: 065
     Dates: start: 20210220, end: 20210228
  10. ERYTHROMYCIN. [Suspect]
     Active Substance: ERYTHROMYCIN
     Indication: DRUG THERAPY
     Dosage: 250MG QDS VIA NG
     Route: 065
     Dates: start: 20210226, end: 20210228
  11. DEXAMETHASONE SODIUM PHOSPHATE. [Suspect]
     Active Substance: DEXAMETHASONE SODIUM PHOSPHATE
     Indication: DRUG THERAPY
     Dosage: 5 MG OD VIA NG
     Route: 065
     Dates: start: 20210225, end: 20210228
  12. DEXAMETHASONE SODIUM PHOSPHATE. [Suspect]
     Active Substance: DEXAMETHASONE SODIUM PHOSPHATE
     Indication: IMMUNOSUPPRESSION
  13. LINEZOLID. [Suspect]
     Active Substance: LINEZOLID
     Indication: FLUID REPLACEMENT
     Dosage: 600 MG BD IV
     Route: 042
     Dates: start: 20210224, end: 20210228
  14. MEROPENEM. [Suspect]
     Active Substance: MEROPENEM
     Indication: EVIDENCE BASED TREATMENT

REACTIONS (2)
  - Cardiac arrest [Fatal]
  - Anaphylactic reaction [Unknown]

NARRATIVE: CASE EVENT DATE: 20210228
